FAERS Safety Report 15133408 (Version 1)
Quarter: 2018Q3

REPORT INFORMATION
  Report Type: Spontaneous
  Country: US (occurrence: US)
  Receive Date: 20180712
  Receipt Date: 20180712
  Transmission Date: 20181010
  Serious: No
  Sender: FDA-Public Use
  Company Number: US-PFIZER INC-2018280438

PATIENT
  Age: 6 Year
  Sex: Male

DRUGS (1)
  1. CORTEF [Suspect]
     Active Substance: HYDROCORTISONE
     Dosage: 5 MG, 2X/DAY(ABOUT 12 HOURS APART) (8.6 MG/M@/DAY)

REACTIONS (3)
  - Somnolence [Unknown]
  - Stress [Unknown]
  - Pyrexia [Unknown]
